FAERS Safety Report 19164480 (Version 1)
Quarter: 2021Q2

REPORT INFORMATION
  Report Type: Spontaneous
  Country: CA (occurrence: CA)
  Receive Date: 20210421
  Receipt Date: 20210421
  Transmission Date: 20210717
  Serious: Yes (Life-Threatening)
  Sender: FDA-Public Use
  Company Number: NVSC2021CA088951

PATIENT
  Age: 59 Year
  Sex: Female

DRUGS (1)
  1. SANDOZ LEVOFLOXACIN [Suspect]
     Active Substance: LEVOFLOXACIN
     Indication: PNEUMONIA
     Dosage: 500 ML, QD
     Route: 048

REACTIONS (2)
  - Mouth swelling [Unknown]
  - Chest pain [Unknown]
